FAERS Safety Report 6889649-4 (Version None)
Quarter: 2010Q3

REPORT INFORMATION
  Report Type: 
  Country: None (occurrence: None)
  Receive Date: 20100730
  Receipt Date: 20080403
  Transmission Date: 20110219
  Serious: No
  Sender: FDA-Public Use
  Company Number: US-PFIZER INC-2008028269

PATIENT
  Sex: Male
  Weight: 86.363 kg

DRUGS (3)
  1. LIPITOR [Suspect]
     Indication: HYPERTENSION
     Route: 048
     Dates: start: 20071201
  2. ACIPHEX [Concomitant]
     Indication: DYSPEPSIA
  3. LISINOPRIL [Concomitant]
     Indication: HYPERTENSION

REACTIONS (2)
  - BLOOD CHOLESTEROL INCREASED [None]
  - FACE INJURY [None]
